FAERS Safety Report 9404890 (Version 1)
Quarter: 2013Q3

REPORT INFORMATION
  Report Type: Spontaneous
  Country: JP (occurrence: JP)
  Receive Date: 20130717
  Receipt Date: 20130717
  Transmission Date: 20140515
  Serious: Yes (Hospitalization)
  Sender: FDA-Public Use
  Company Number: JP-SANOFI-AVENTIS-2013SA069877

PATIENT
  Age: 75 Year
  Sex: Male

DRUGS (8)
  1. SEIBULE [Suspect]
     Indication: DIABETES MELLITUS
     Route: 048
     Dates: end: 20130603
  2. AMARYL [Suspect]
     Indication: PRODUCT USED FOR UNKNOWN INDICATION
     Route: 048
     Dates: end: 20130603
  3. BUP-4 [Concomitant]
     Dates: end: 20130603
  4. BAYASPIRIN [Concomitant]
     Dates: end: 20130603
  5. URIEF [Concomitant]
     Dates: end: 20130603
  6. GASSAAL [Concomitant]
     Dates: end: 20130703
  7. OLMETEC [Concomitant]
     Dates: end: 20130603
  8. NORVASK [Concomitant]
     Dates: end: 20130603

REACTIONS (1)
  - Pneumatosis intestinalis [Unknown]
